FAERS Safety Report 7602576-X (Version None)
Quarter: 2011Q3

REPORT INFORMATION
  Report Type: 
  Country: None (occurrence: None)
  Receive Date: 20110707
  Receipt Date: 20110525
  Transmission Date: 20111222
  Serious: Yes (Other)
  Sender: FDA-Public Use
  Company Number: US-CYPR-2011-000021

PATIENT
  Sex: Male
  Weight: 91.173 kg

DRUGS (21)
  1. PRAVASTATIN [Concomitant]
  2. CENTRUM SILVER [Concomitant]
  3. CLOPIDOGREL [Suspect]
     Indication: ANTIPLATELET THERAPY
     Dosage: (75 MG QD ORAL) ; (75 MG QD ORAL)
     Route: 048
     Dates: start: 20110514
  4. CLOPIDOGREL [Suspect]
     Indication: ANTIPLATELET THERAPY
     Dosage: (75 MG QD ORAL) ; (75 MG QD ORAL)
     Route: 048
     Dates: start: 20110303, end: 20110506
  5. ASCORBIC ACID [Concomitant]
  6. PENTOXIFYLLINE [Concomitant]
  7. VITAMIN E [Concomitant]
  8. CYPHER STENT [Concomitant]
  9. NIACIN [Concomitant]
  10. XANAX [Concomitant]
  11. ASPIRIN [Suspect]
     Indication: CORONARY ARTERY DISEASE
     Dosage: (325 MG 325X/DAY ORAL)
     Route: 048
     Dates: start: 20000101
  12. METOPROLOL TARTRATE [Concomitant]
  13. LASIX [Concomitant]
  14. AMBIEN [Concomitant]
  15. FLOMAX [Concomitant]
  16. FISH OIL [Concomitant]
  17. RANITIDINE [Concomitant]
  18. LISINOPRIL [Concomitant]
  19. CALCIUM CARBONATE [Concomitant]
  20. VASOTEC [Concomitant]
  21. POTASSIUM [Concomitant]

REACTIONS (1)
  - PROSTATE CANCER [None]
